FAERS Safety Report 9412669 (Version 2)
Quarter: 2013Q3

REPORT INFORMATION
  Report Type: Spontaneous
  Country: VE (occurrence: VE)
  Receive Date: 20130722
  Receipt Date: 20130916
  Transmission Date: 20140515
  Serious: Yes (Death, Hospitalization)
  Sender: FDA-Public Use
  Company Number: VE-PFIZER INC-2013212916

PATIENT
  Age: 73 Year
  Sex: Female

DRUGS (1)
  1. LIPITOR [Suspect]
     Indication: PROPHYLAXIS
     Dosage: UNK, ONCE DAILY
     Route: 048
     Dates: start: 2006, end: 20130618

REACTIONS (2)
  - Influenza [Fatal]
  - Pneumonia [Fatal]
